FAERS Safety Report 8746524 (Version 3)
Quarter: 2012Q4

REPORT INFORMATION
  Report Type: 
  Country: US (occurrence: US)
  Receive Date: 20120827
  Receipt Date: 20120905
  Transmission Date: 20130627
  Serious: Yes (Other)
  Sender: FDA-Public Use
  Company Number: US-BRISTOL-MYERS SQUIBB COMPANY-16863128

PATIENT
  Age: 63 Year
  Sex: Female

DRUGS (1)
  1. ONGLYZA TABS 5 MG [Suspect]

REACTIONS (1)
  - Diarrhoea [Unknown]
